FAERS Safety Report 8396356-8 (Version None)
Quarter: 2012Q2

REPORT INFORMATION
  Report Type: 
  Country: None (occurrence: None)
  Receive Date: 20120530
  Receipt Date: 20120521
  Transmission Date: 20120825
  Serious: Yes (Hospitalization, Disabling)
  Sender: FDA-Public Use
  Company Number: US-MERCK-1205USA04579

PATIENT
  Age: 57 Year
  Sex: Female

DRUGS (4)
  1. FOSAMAX [Suspect]
     Indication: OSTEOPOROSIS PROPHYLAXIS
     Route: 048
     Dates: start: 19920101, end: 20090101
  2. FOSAMAX [Suspect]
     Indication: OSTEOPENIA
     Route: 048
     Dates: start: 19920101, end: 20090101
  3. FOSAMAX PLUS D [Suspect]
     Indication: OSTEOPENIA
     Route: 048
     Dates: start: 19920101, end: 20030601
  4. FOSAMAX PLUS D [Suspect]
     Indication: OSTEOPOROSIS PROPHYLAXIS
     Route: 048
     Dates: start: 19920101, end: 20030601

REACTIONS (8)
  - BLOOD CHOLESTEROL INCREASED [None]
  - CROHN'S DISEASE [None]
  - HYPERTENSION [None]
  - OSTEOPETROSIS [None]
  - FEMUR FRACTURE [None]
  - ROTATOR CUFF SYNDROME [None]
  - LOW TURNOVER OSTEOPATHY [None]
  - TOOTH DISORDER [None]
